FAERS Safety Report 8349383-0 (Version None)
Quarter: 2012Q2

REPORT INFORMATION
  Report Type: 
  Country: None (occurrence: None)
  Receive Date: 20120510
  Receipt Date: 20120509
  Transmission Date: 20120825
  Serious: Yes (Other)
  Sender: FDA-Public Use
  Company Number: US-PFIZER INC-2012113635

PATIENT
  Sex: Female
  Weight: 76.19 kg

DRUGS (2)
  1. LO/OVRAL [Concomitant]
     Indication: CONTRACEPTION
     Dosage: UNK
  2. ZOLOFT [Suspect]
     Indication: PREMENSTRUAL SYNDROME
     Dosage: 50 MG, DAILY
     Dates: end: 20120101

REACTIONS (1)
  - BREAST CANCER STAGE III [None]
